FAERS Safety Report 25048618 (Version 1)
Quarter: 2025Q1

REPORT INFORMATION
  Report Type: Spontaneous
  Country: GR (occurrence: GR)
  Receive Date: 20250307
  Receipt Date: 20250307
  Transmission Date: 20250409
  Serious: Yes (Other)
  Sender: EMD SERONO INC
  Company Number: None

PATIENT
  Age: 6 Year
  Sex: Male

DRUGS (2)
  1. SAIZEN [Suspect]
     Active Substance: SOMATROPIN
     Indication: Body height below normal
     Dosage: 5.83 MG/ML - 1X1X30 DAYS
     Dates: start: 20230207, end: 20240305
  2. GENOTROPIN [Suspect]
     Active Substance: SOMATROPIN
     Indication: Body height below normal
     Dosage: 5.3 MG/CARTRIDGE - 1X1X30 DAYS
     Dates: start: 20240305

REACTIONS (1)
  - Cryptorchism [Unknown]

NARRATIVE: CASE EVENT DATE: 20241201
